FAERS Safety Report 5693175-8 (Version None)
Quarter: 2008Q2

REPORT INFORMATION
  Report Type: 
  Country: None (occurrence: None)
  Receive Date: 20080403
  Receipt Date: 20080322
  Transmission Date: 20081010
  Serious: Yes (Other)
  Sender: FDA-Public Use
  Company Number: US-BAYER-200818575NA

PATIENT
  Age: 8 Year
  Sex: Female
  Weight: 24 kg

DRUGS (2)
  1. CIPRO [Suspect]
     Indication: URINARY TRACT INFECTION
     Dosage: TOTAL DAILY DOSE: 24 ML
     Route: 048
     Dates: start: 20080310, end: 20080320
  2. AMOXICILLIN [Concomitant]
     Dates: start: 20080201

REACTIONS (4)
  - BACK PAIN [None]
  - KIDNEY INFECTION [None]
  - PAIN IN EXTREMITY [None]
  - SINUSITIS [None]
